FAERS Safety Report 10343151 (Version 4)
Quarter: 2014Q3

REPORT INFORMATION
  Report Type: Spontaneous
  Country: US (occurrence: None)
  Receive Date: 20140723
  Receipt Date: 20140825
  Transmission Date: 20150326
  Serious: Yes (Hospitalization)
  Sender: FDA-Public Use
  Company Number: UNT-2014-003932

PATIENT
  Age: 73 Year
  Sex: Female
  Weight: 81.6 kg

DRUGS (4)
  1. TYVASO [Suspect]
     Active Substance: TREPROSTINIL
     Indication: COR PULMONALE CHRONIC
     Route: 055
     Dates: start: 20140528
  2. TYVASO [Suspect]
     Active Substance: TREPROSTINIL
     Indication: PULMONARY ARTERIAL HYPERTENSION
     Route: 055
     Dates: start: 20140528
  3. ADCIRCA [Concomitant]
     Active Substance: TADALAFIL
  4. LETAIRIS [Concomitant]
     Active Substance: AMBRISENTAN

REACTIONS (2)
  - Laceration [None]
  - Fall [None]

NARRATIVE: CASE EVENT DATE: 20140709
